FAERS Safety Report 9234953 (Version 1)
Quarter: 2013Q2

REPORT INFORMATION
  Report Type: Spontaneous
  Country: GB (occurrence: GB)
  Receive Date: 20130416
  Receipt Date: 20130416
  Transmission Date: 20140414
  Serious: Yes (Other)
  Sender: FDA-Public Use
  Company Number: GB-MYLANLABS-2013S1007631

PATIENT
  Age: 60 Year
  Sex: Male

DRUGS (6)
  1. PAROXETINE [Suspect]
     Indication: PRODUCT USED FOR UNKNOWN INDICATION
  2. PAROXETINE [Interacting]
     Indication: PRODUCT USED FOR UNKNOWN INDICATION
  3. CLOZARIL [Suspect]
     Indication: SCHIZOPHRENIA
     Route: 048
     Dates: start: 20010701, end: 201211
  4. CLOZARIL [Suspect]
     Indication: SCHIZOPHRENIA
  5. CLOZARIL [Suspect]
     Indication: SCHIZOPHRENIA
     Route: 048
  6. CLOZARIL [Suspect]
     Indication: SCHIZOPHRENIA
     Dates: start: 201303

REACTIONS (4)
  - Drug interaction [Recovering/Resolving]
  - Antipsychotic drug level increased [Unknown]
  - Gamma-glutamyltransferase increased [Unknown]
  - Sedation [Unknown]
